FAERS Safety Report 8266884 (Version 4)
Quarter: 2012Q4

REPORT INFORMATION
  Report Type: Report from Study
  Country: PL (occurrence: PL)
  Receive Date: 20111129
  Receipt Date: 20120918
  Transmission Date: 20130627
  Serious: Yes (Death, Hospitalization)
  Sender: FDA-Public Use
  Company Number: PL-UCBSA-046072

PATIENT
  Age: 66 Year
  Sex: Female
  Weight: 91.6 kg

DRUGS (9)
  1. CERTOLIZUMAB PEGOL [Suspect]
     Indication: PSORIATIC ARTHROPATHY
     Route: 058
     Dates: start: 20110524, end: 20111117
  2. CERTOLIZUMAB PEGOL [Suspect]
     Indication: PSORIATIC ARTHROPATHY
     Route: 058
     Dates: start: 20101207, end: 20110524
  3. POLPRAZOL [Concomitant]
     Indication: GASTRIC ULCER
     Route: 048
     Dates: start: 20100329, end: 201201
  4. POLPRIL [Concomitant]
     Indication: HYPERTENSION
     Route: 048
     Dates: start: 200808, end: 201201
  5. ELTROXIN [Concomitant]
     Indication: HYPOTHYROIDISM
     Route: 048
     Dates: start: 200005, end: 201201
  6. ACIDUM FOLICUM [Concomitant]
     Indication: UNEVALUABLE EVENT
     Dosage: 5 MG QS
     Route: 048
     Dates: start: 20061002, end: 201201
  7. BISOCARD [Concomitant]
     Indication: HYPERTENSION
     Route: 048
     Dates: start: 20100329, end: 201201
  8. METHOTREXATE [Concomitant]
     Indication: PSORIATIC ARTHROPATHY
     Dosage: 15 MG QS
     Route: 048
     Dates: start: 20100621, end: 201201
  9. DICLOFENAC [Concomitant]
     Indication: PSORIATIC ARTHROPATHY
     Route: 048
     Dates: start: 20100329, end: 201201

REACTIONS (1)
  - Breast cancer [Fatal]
